FAERS Safety Report 13768067 (Version 1)
Quarter: 2017Q3

REPORT INFORMATION
  Report Type: Spontaneous
  Country: US (occurrence: US)
  Receive Date: 20170719
  Receipt Date: 20170719
  Transmission Date: 20171127
  Serious: Yes (Other)
  Sender: FDA-Public Use
  Company Number: US-PFIZER INC-2017312052

PATIENT
  Sex: Male

DRUGS (1)
  1. LYRICA [Suspect]
     Active Substance: PREGABALIN
     Dosage: UNK
     Dates: end: 20170714

REACTIONS (5)
  - Localised infection [Unknown]
  - Diabetes mellitus [Unknown]
  - Neuralgia [Unknown]
  - Skin ulcer [Recovering/Resolving]
  - Insomnia [Unknown]
